FAERS Safety Report 20341349 (Version 1)
Quarter: 2022Q1

REPORT INFORMATION
  Report Type: Report from Study
  Country: US (occurrence: US)
  Receive Date: 20220117
  Receipt Date: 20220117
  Transmission Date: 20220424
  Serious: Yes (Other)
  Sender: FDA-Public Use
  Company Number: US-JNJFOC-20220115419

PATIENT
  Age: 30 Year
  Sex: Female

DRUGS (1)
  1. EPOPROSTENOL SODIUM [Suspect]
     Active Substance: EPOPROSTENOL SODIUM
     Indication: Pulmonary arterial hypertension
     Dosage: 1.5MG/VL INTRAVNEOUS
     Route: 042
     Dates: start: 20211204

REACTIONS (3)
  - Drug delivery system malfunction [Unknown]
  - Device occlusion [Unknown]
  - Product administration interrupted [Unknown]

NARRATIVE: CASE EVENT DATE: 20220106
